FAERS Safety Report 23943090 (Version 2)
Quarter: 2024Q4

REPORT INFORMATION
  Report Type: Spontaneous
  Country: BR (occurrence: BR)
  Receive Date: 20240605
  Receipt Date: 20241219
  Transmission Date: 20250115
  Serious: Yes (Other)
  Sender: ABBVIE
  Company Number: BR-ABBOTT-2024A-1381323

PATIENT
  Sex: Male
  Weight: 74 kg

DRUGS (2)
  1. DEPAKOTE [Suspect]
     Active Substance: DIVALPROEX SODIUM
     Indication: Neoplasm malignant
     Dosage: 1000 MG DAILY  ER
     Route: 048
     Dates: start: 2023
  2. DEPAKOTE [Suspect]
     Active Substance: DIVALPROEX SODIUM
     Indication: Neoplasm malignant
     Dosage: 750 MG IN THE MORNING AND 500 MG AT NIGHT, EVERY 12 HOURS. (1250 MG DAILY)  ER
     Route: 048
     Dates: start: 202404

REACTIONS (8)
  - Loss of consciousness [Recovering/Resolving]
  - Product residue present [Recovering/Resolving]
  - Product quality issue [Unknown]
  - Lack of administration site rotation [Recovering/Resolving]
  - Epilepsy [Recovering/Resolving]
  - Seizure [Recovering/Resolving]
  - Paraesthesia [Recovering/Resolving]
  - Muscle spasms [Recovering/Resolving]

NARRATIVE: CASE EVENT DATE: 20240516
